FAERS Safety Report 10945239 (Version 1)
Quarter: 2015Q1

REPORT INFORMATION
  Report Type: Spontaneous
  Country: US (occurrence: None)
  Receive Date: 20150129
  Receipt Date: 20150129
  Transmission Date: 20150721
  Serious: No
  Sender: FDA-Public Use
  Company Number: A-US2014-104420

PATIENT
  Age: 74 Year
  Sex: Female

DRUGS (2)
  1. OPSUMIT [Suspect]
     Active Substance: MACITENTAN
     Indication: CONNECTIVE TISSUE DISORDER
     Route: 048
     Dates: start: 20140813
  2. REVATIO (SILDENAFIL CITRATE) [Concomitant]

REACTIONS (6)
  - Chest pain [None]
  - Pain in extremity [None]
  - Breast pain [None]
  - Pneumonia [None]
  - Malaise [None]
  - Nasopharyngitis [None]
